FAERS Safety Report 9669723 (Version 1)
Quarter: 2013Q4

REPORT INFORMATION
  Report Type: Spontaneous
  Country: US (occurrence: US)
  Receive Date: 20131105
  Receipt Date: 20131105
  Transmission Date: 20140711
  Serious: No
  Sender: FDA-Public Use
  Company Number: US-BAYER-2013-134001

PATIENT
  Age: 54 Year
  Sex: Female
  Weight: 66 kg

DRUGS (2)
  1. ALEVE TABLET [Suspect]
     Indication: DYSMENORRHOEA
     Dosage: 1-2 TABLET, PRN
     Route: 048
     Dates: start: 2011
  2. ALEVE TABLET [Suspect]
     Indication: PAIN IN EXTREMITY
     Dosage: 4 DF, PRN
     Route: 048

REACTIONS (5)
  - Gastric disorder [Unknown]
  - Drug ineffective [None]
  - Extra dose administered [None]
  - Drug ineffective [None]
  - Intentional drug misuse [None]
